FAERS Safety Report 15762941 (Version 1)
Quarter: 2018Q4

REPORT INFORMATION
  Report Type: Report from Study
  Country: CO (occurrence: CO)
  Receive Date: 20181226
  Receipt Date: 20181226
  Transmission Date: 20190205
  Serious: Yes (Hospitalization, Other)
  Sender: FDA-Public Use
  Company Number: CO-TAKEDA-2018TUS036753

PATIENT
  Age: 58 Year
  Sex: Female
  Weight: 57 kg

DRUGS (5)
  1. PONATINIB [Suspect]
     Active Substance: PONATINIB
     Indication: CHRONIC MYELOID LEUKAEMIA
     Dosage: 45 MG, UNK
     Route: 048
     Dates: start: 20180525, end: 20180622
  2. ATORVASTATIN [Concomitant]
     Active Substance: ATORVASTATIN
     Indication: ADVERSE DRUG REACTION
     Dosage: 20 MG, UNK
     Route: 048
     Dates: start: 2018
  3. PONATINIB [Suspect]
     Active Substance: PONATINIB
     Dosage: 45 MG, UNK
     Route: 048
     Dates: start: 20180928, end: 20181027
  4. BISACODILO [Concomitant]
     Indication: ADVERSE DRUG REACTION
     Dosage: 5 MG, UNK
     Route: 048
     Dates: start: 2018
  5. OXYCODONE [Concomitant]
     Active Substance: OXYCODONE
     Indication: ADVERSE DRUG REACTION
     Dosage: 10 MG, UNK
     Route: 048
     Dates: start: 2018

REACTIONS (1)
  - Chronic myeloid leukaemia recurrent [Unknown]

NARRATIVE: CASE EVENT DATE: 20181027
